FAERS Safety Report 8987880 (Version 4)
Quarter: 2013Q1

REPORT INFORMATION
  Report Type: Report from Study
  Country: US (occurrence: US)
  Receive Date: 20121227
  Receipt Date: 20130329
  Transmission Date: 20140127
  Serious: Yes (Life-Threatening, Hospitalization)
  Sender: FDA-Public Use
  Company Number: US-PFIZER INC-2012325052

PATIENT
  Age: 73 Year
  Sex: Female
  Weight: 111.11 kg

DRUGS (18)
  1. TOFACITINIB CITRATE [Suspect]
     Indication: RHEUMATOID ARTHRITIS
     Dosage: 10 MG, 2X/DAY
     Route: 048
     Dates: start: 20100106, end: 20121214
  2. PIPERACILLIN [Concomitant]
     Indication: SEPSIS
     Dosage: UNK
     Route: 042
     Dates: start: 20121219
  3. TAZOBACTAM [Concomitant]
     Indication: SEPSIS
     Dosage: UNK
     Route: 042
     Dates: start: 20121219
  4. VANCOMYCIN [Concomitant]
     Indication: SEPSIS
     Dosage: UNK
     Route: 042
     Dates: start: 20121219
  5. ACYCLOVIR [Concomitant]
     Indication: HERPES ZOSTER
     Dosage: UNK
     Route: 048
     Dates: start: 20121219
  6. PREDNISONE [Concomitant]
     Indication: RHEUMATOID ARTHRITIS
     Dosage: UNK
     Route: 048
  7. METHOTREXATE [Concomitant]
     Indication: RHEUMATOID ARTHRITIS
     Dosage: UNK
     Route: 048
     Dates: end: 20121214
  8. VALTREX [Concomitant]
     Indication: HERPES ZOSTER
     Dosage: 1 G, AS NEEDED
     Route: 048
     Dates: start: 20121212, end: 20121219
  9. XARELTO [Concomitant]
     Indication: EMBOLISM
     Dosage: UNK
     Route: 048
     Dates: end: 20121219
  10. CELEBREX [Concomitant]
     Indication: RHEUMATOID ARTHRITIS
     Dosage: UNK
     Route: 048
     Dates: end: 20121219
  11. FOLIC ACID [Concomitant]
     Indication: RHEUMATOID ARTHRITIS
     Dosage: UNK, QD
     Route: 048
  12. NORVASC [Concomitant]
     Indication: HYPERTENSION
     Dosage: UNK, QD
     Route: 048
  13. DIOVAN HCT [Concomitant]
     Indication: HYPERTENSION
     Dosage: UNK, QD
     Route: 048
  14. CALCIUM [Concomitant]
     Indication: PROPHYLAXIS
     Dosage: UNK, QD
     Route: 048
  15. CYCLOBENZAPRINE [Concomitant]
     Indication: INSOMNIA
     Dosage: UNK, QHS
     Route: 048
  16. RESTASIS [Concomitant]
     Indication: DRY EYE
     Dosage: UNK, 2X/DAY
     Route: 047
  17. LEVOXYL [Concomitant]
     Indication: HYPOTHYROIDISM
     Dosage: 100 UG, 1X/DAY
     Route: 048
  18. MULTIVITAMINS [Concomitant]
     Indication: SUPPLEMENTATION THERAPY
     Dosage: UNK, QD
     Route: 048

REACTIONS (4)
  - Acute respiratory failure [Recovered/Resolved]
  - Pneumonia [Recovered/Resolved]
  - Sepsis [Recovered/Resolved]
  - Septic shock [Recovered/Resolved]
